FAERS Safety Report 5161765-7 (Version None)
Quarter: 2006Q4

REPORT INFORMATION
  Report Type: 
  Country: None (occurrence: None)
  Receive Date: 20061121
  Receipt Date: 20061108
  Transmission Date: 20070319
  Serious: Yes (Other)
  Sender: FDA-Public Use
  Company Number: 2006115398

PATIENT
  Age: 65 Year
  Sex: Female
  Weight: 72.5755 kg

DRUGS (14)
  1. LYRICA [Suspect]
     Indication: NEURALGIA
     Dosage: 100 MG (50 MG, FREQUENCY:  BID), ORAL
     Route: 048
     Dates: start: 20060611
  2. GABAPENTIN [Suspect]
     Indication: NEURALGIA
     Dosage: 1200 MG (400 MG, FREQUENCY:  TID), ORAL
     Route: 048
     Dates: start: 20060415, end: 20060625
  3. NOVOLIN 70/30 [Concomitant]
  4. APO-METFORMIN (METFORMIN HYDROCHLORIDE) [Concomitant]
  5. NORVASC [Concomitant]
  6. VASOTEC [Concomitant]
  7. RHOTRAL (ACEBUTOLOL HYDROCHLORIDE) [Concomitant]
  8. ASAPHEN (ACETYLSALICYLIC ACID) [Concomitant]
  9. DIABETA [Concomitant]
  10. LOVASTATIN [Concomitant]
  11. OXAZEPAM [Concomitant]
  12. PANTOPRAZOLE SODIUM [Concomitant]
  13. FUROSEMIDE [Concomitant]
  14. CATAPRES [Concomitant]

REACTIONS (1)
  - BLOOD GLUCOSE INCREASED [None]
